FAERS Safety Report 13254375 (Version 1)
Quarter: 2017Q1

REPORT INFORMATION
  Report Type: Spontaneous
  Country: IT (occurrence: IT)
  Receive Date: 20170221
  Receipt Date: 20170221
  Transmission Date: 20170428
  Serious: Yes (Hospitalization)
  Sender: FDA-Public Use
  Company Number: IT-INVENTIA-000161

PATIENT
  Age: 78 Year
  Sex: Male

DRUGS (6)
  1. GLIMEPIRIDE. [Concomitant]
     Active Substance: GLIMEPIRIDE
  2. ACETYLSALICYLIC ACID [Concomitant]
     Active Substance: ASPIRIN
     Dosage: 100 MG / DAY
  3. HYDROCHLOROTHIAZIDE/RAMIPRIL [Concomitant]
  4. METFORMIN [Suspect]
     Active Substance: METFORMIN HYDROCHLORIDE
     Indication: TYPE 2 DIABETES MELLITUS
     Dosage: WITH MEALS
  5. ROSUVASTATIN/ROSUVASTATIN CALCIUM [Concomitant]
  6. LEVEMIR [Concomitant]
     Active Substance: INSULIN DETEMIR

REACTIONS (4)
  - Acute kidney injury [Unknown]
  - Pulmonary sepsis [Unknown]
  - Accidental overdose [Unknown]
  - Lactic acidosis [Unknown]
